FAERS Safety Report 7781245-X (Version None)
Quarter: 2011Q3

REPORT INFORMATION
  Report Type: 
  Country: None (occurrence: None)
  Receive Date: 20110923
  Receipt Date: 20110907
  Transmission Date: 20111222
  Serious: Yes (Hospitalization)
  Sender: FDA-Public Use
  Company Number: 1000023881

PATIENT
  Age: 48 Year
  Sex: Female

DRUGS (3)
  1. LORAZEPAM [Suspect]
     Dosage: ORAL; ORAL
     Route: 048
     Dates: start: 20110626, end: 20110626
  2. ESCITALOPRAM [Suspect]
     Dosage: ORAL; 30 DOSAGE FORMS, ONCE, ORAL
     Route: 048
     Dates: start: 20110626, end: 20110626
  3. LORAZEPAM [Suspect]
     Dosage: ORAL; ORAL
     Route: 048
     Dates: start: 20110626, end: 20110626

REACTIONS (2)
  - COMA [None]
  - MULTIPLE DRUG OVERDOSE INTENTIONAL [None]
